FAERS Safety Report 6886096-6 (Version None)
Quarter: 2010Q3

REPORT INFORMATION
  Report Type: 
  Country: None (occurrence: None)
  Receive Date: 20100729
  Receipt Date: 20080908
  Transmission Date: 20110219
  Serious: No
  Sender: FDA-Public Use
  Company Number: US-PFIZER INC-2008074832

PATIENT
  Sex: Female
  Weight: 49.9 kg

DRUGS (2)
  1. CELEBREX [Suspect]
     Indication: TENDONITIS
     Route: 048
     Dates: start: 20080822, end: 20080801
  2. VITAMINS [Concomitant]

REACTIONS (3)
  - ABDOMINAL PAIN UPPER [None]
  - ADVERSE DRUG REACTION [None]
  - DIARRHOEA [None]
